FAERS Safety Report 5559649-5 (Version None)
Quarter: 2007Q4

REPORT INFORMATION
  Report Type: 
  Country: None (occurrence: None)
  Receive Date: 20071214
  Receipt Date: 20071004
  Transmission Date: 20080405
  Serious: No
  Sender: FDA-Public Use
  Company Number: US-ABBOTT-07P-163-0420121-00

PATIENT
  Sex: Male
  Weight: 91 kg

DRUGS (2)
  1. HUMIRA [Suspect]
     Indication: RHEUMATOID ARTHRITIS
     Route: 058
     Dates: start: 20070201, end: 20070917
  2. ALBUTEROL [Concomitant]
     Indication: EMPHYSEMA
     Route: 055

REACTIONS (1)
  - INFECTION [None]
